FAERS Safety Report 22350547 (Version 1)
Quarter: 2023Q2

REPORT INFORMATION
  Report Type: Spontaneous
  Country: CN (occurrence: CN)
  Receive Date: 20230522
  Receipt Date: 20230522
  Transmission Date: 20230721
  Serious: Yes (Other)
  Sender: FDA-Public Use
  Company Number: CN-OTSUKA-2023_013138

PATIENT
  Age: 107 Year
  Sex: Male

DRUGS (2)
  1. SAMSCA [Suspect]
     Active Substance: TOLVAPTAN
     Indication: Polyuria
     Dosage: 7.5 MG, QD
     Route: 048
     Dates: start: 20230415, end: 20230417
  2. FUROSEMIDE [Suspect]
     Active Substance: FUROSEMIDE
     Indication: Polyuria
     Dosage: 20 MG, QD
     Route: 048
     Dates: start: 20230414, end: 20230428

REACTIONS (2)
  - Hypokalaemia [Recovering/Resolving]
  - Product use in unapproved indication [Unknown]

NARRATIVE: CASE EVENT DATE: 20230415
